FAERS Safety Report 16360071 (Version 3)
Quarter: 2024Q3

REPORT INFORMATION
  Report Type: Spontaneous
  Country: US (occurrence: US)
  Receive Date: 20190528
  Receipt Date: 20240919
  Transmission Date: 20241017
  Serious: Yes (Hospitalization)
  Sender: ROCHE
  Company Number: US-ROCHE-2310255

PATIENT
  Age: 66 Year
  Sex: Male

DRUGS (4)
  1. GANCICLOVIR [Suspect]
     Active Substance: GANCICLOVIR
     Indication: Ophthalmic herpes zoster
     Route: 031
  2. MYCOPHENOLATE MOFETIL [Suspect]
     Active Substance: MYCOPHENOLATE MOFETIL
     Indication: Immunosuppression
     Route: 065
  3. PREDNISONE [Suspect]
     Active Substance: PREDNISONE
     Indication: Immunosuppression
     Dosage: FREQUENCY TEXT:DAILY
     Route: 065
  4. SIROLIMUS [Suspect]
     Active Substance: SIROLIMUS
     Indication: Immunosuppression
     Route: 065

REACTIONS (4)
  - Ophthalmic herpes zoster [Recovered/Resolved]
  - Herpes zoster meningoencephalitis [Recovered/Resolved]
  - Off label use [Unknown]
  - Off label use [Unknown]
